FAERS Safety Report 17134114 (Version 1)
Quarter: 2019Q4

REPORT INFORMATION
  Report Type: Spontaneous
  Country: FR (occurrence: FR)
  Receive Date: 20191210
  Receipt Date: 20191210
  Transmission Date: 20200122
  Serious: Yes (Hospitalization, Other)
  Sender: FDA-Public Use
  Company Number: FR-ABBVIE-17K-056-3094710-00

PATIENT
  Age: 75 Year
  Sex: Female

DRUGS (6)
  1. CYCLOPHOSPHAMIDE. [Suspect]
     Active Substance: CYCLOPHOSPHAMIDE
     Indication: CHRONIC LYMPHOCYTIC LEUKAEMIA
     Dosage: 6 CYCLES
     Route: 065
     Dates: end: 201505
  2. IMBRUVICA [Suspect]
     Active Substance: IBRUTINIB
     Indication: HEPATITIS B DNA INCREASED
     Route: 048
  3. RITUXIMAB. [Suspect]
     Active Substance: RITUXIMAB
     Dosage: 500 MG/M2, QMO
     Route: 065
     Dates: start: 20150301
  4. RITUXIMAB. [Suspect]
     Active Substance: RITUXIMAB
     Dosage: 500 MG/M2, QMO
     Route: 065
     Dates: start: 201503
  5. RITUXIMAB. [Suspect]
     Active Substance: RITUXIMAB
     Indication: CHRONIC LYMPHOCYTIC LEUKAEMIA
     Dosage: 500 MG/M2, QMO
     Route: 065
     Dates: start: 20130501
  6. LEVOFLOXACIN. [Concomitant]
     Active Substance: LEVOFLOXACIN
     Indication: SINUSITIS
     Dosage: DOSAGE FORM: UNSPECIFIED
     Route: 065

REACTIONS (8)
  - Eye movement disorder [Not Recovered/Not Resolved]
  - Blindness [Not Recovered/Not Resolved]
  - Mydriasis [Not Recovered/Not Resolved]
  - Cavernous sinus thrombosis [Unknown]
  - Aspergillus infection [Unknown]
  - Headache [Unknown]
  - Eyelid ptosis [Not Recovered/Not Resolved]
  - Acute sinusitis [Unknown]

NARRATIVE: CASE EVENT DATE: 20150301
